FAERS Safety Report 14421247 (Version 4)
Quarter: 2018Q1

REPORT INFORMATION
  Report Type: Report from Study
  Country: None (occurrence: FR)
  Receive Date: 20180122
  Receipt Date: 20180306
  Transmission Date: 20180509
  Serious: Yes (Other)
  Sender: FDA-Public Use
  Company Number: FR-ABBVIE-18P-056-2221679-00

PATIENT
  Age: 73 Year
  Sex: Male
  Weight: 90 kg

DRUGS (12)
  1. CYCLOPHOSPHAMIDE. [Suspect]
     Active Substance: CYCLOPHOSPHAMIDE
     Indication: DIFFUSE LARGE B-CELL LYMPHOMA
     Dosage: DAY 1 OF 21 DAY CYCLE UP TO CYCLE 6. RECENT DOSE (1650MG) PRIOR TO SAE 01 SEP 2016
     Route: 042
     Dates: start: 20160521
  2. DOXORUBICIN [Suspect]
     Active Substance: DOXORUBICIN
     Indication: DIFFUSE LARGE B-CELL LYMPHOMA
     Dosage: MOST RECENT DOSE (100MG) PRIOR TO SAE ON 01 SEP 2016
     Route: 042
     Dates: start: 20160520
  3. VINCRISTINE [Suspect]
     Active Substance: VINCRISTINE
     Indication: DIFFUSE LARGE B-CELL LYMPHOMA
     Dosage: MOST RECENT DOSE (2.0MG/M2) PRIOR TO SAE ON 01 SEP 2016
     Route: 042
     Dates: start: 20160521
  4. PREDNISONE. [Suspect]
     Active Substance: PREDNISONE
     Indication: DIFFUSE LARGE B-CELL LYMPHOMA
     Dosage: DAYS 1-5 OF 21 DAY CYCLE UP TO CYCLE 6; MOST RECENT DOSE (100MG) 05 SEP 2016
     Route: 048
     Dates: start: 20160519
  5. BICARB (MOUTHWASH) [Concomitant]
     Indication: PROPHYLAXIS
     Dates: start: 20160523
  6. VENETOCLAX. [Suspect]
     Active Substance: VENETOCLAX
     Indication: DIFFUSE LARGE B-CELL LYMPHOMA
     Dosage: 200MG TO 800MG-MOST RECENT DOSE (800MG) PRIOR TO SAE 18 OCT 2016
     Route: 048
     Dates: start: 20160523
  7. GA101 [Suspect]
     Active Substance: OBINUTUZUMAB
     Indication: DIFFUSE LARGE B-CELL LYMPHOMA
     Dosage: DAYS 1,8,15 OF CYCLE1 + DAY 1 CYCLES 2-8. RECENT DOSE (1000MG) PRIOR TO SAE 14 OCT 2016
     Route: 042
     Dates: start: 20160519
  8. ZELITREX [Concomitant]
     Active Substance: VALACYCLOVIR HYDROCHLORIDE
     Indication: PROPHYLAXIS
     Dates: start: 20160602
  9. PRIMPERAN [Concomitant]
     Active Substance: METOCLOPRAMIDE HYDROCHLORIDE
     Indication: NAUSEA
     Dates: start: 20160521
  10. FUNGIZONE [Concomitant]
     Active Substance: AMPHOTERICIN B
     Indication: ORAL FUNGAL INFECTION
     Dates: start: 20160901
  11. VERAPAMIL [Concomitant]
     Active Substance: VERAPAMIL HYDROCHLORIDE
     Indication: HYPERTENSION
  12. BICARBONATE DE SODIUM [Concomitant]
     Active Substance: SODIUM BICARBONATE
     Indication: ORAL FUNGAL INFECTION
     Dates: start: 20160824

REACTIONS (1)
  - Squamous cell carcinoma of skin [Not Recovered/Not Resolved]

NARRATIVE: CASE EVENT DATE: 20171204
